FAERS Safety Report 8773792 (Version 4)
Quarter: 2014Q4

REPORT INFORMATION
  Report Type: Spontaneous
  Country: US (occurrence: US)
  Receive Date: 20120907
  Receipt Date: 20141125
  Transmission Date: 20150529
  Serious: Yes (Hospitalization, Disabling, Other)
  Sender: FDA-Public Use
  Company Number: US-MERCK-1209USA000896

PATIENT
  Sex: Female
  Weight: 68.27 kg

DRUGS (4)
  1. ASPIRIN. [Concomitant]
     Active Substance: ASPIRIN
     Indication: JUVENILE IDIOPATHIC ARTHRITIS
     Dosage: 8-9 TABLETS DAILY
     Route: 048
  2. PRILOSEC [Concomitant]
     Active Substance: OMEPRAZOLE MAGNESIUM
     Indication: PRODUCT USED FOR UNKNOWN INDICATION
     Dosage: UNK
     Route: 048
     Dates: start: 1996
  3. FOSAMAX [Suspect]
     Active Substance: ALENDRONATE SODIUM
     Indication: OSTEOPOROSIS
     Dosage: 10 MG, QD
     Route: 048
     Dates: start: 19951117, end: 2001
  4. FOSAMAX [Suspect]
     Active Substance: ALENDRONATE SODIUM
     Indication: OSTEOPOROSIS PROPHYLAXIS
     Dosage: 70 MG, QW
     Route: 048
     Dates: start: 2001

REACTIONS (40)
  - Femur fracture [Recovered/Resolved]
  - Fall [Unknown]
  - Skin abrasion [Unknown]
  - Infection [Unknown]
  - Arthralgia [Unknown]
  - Hot flush [Unknown]
  - Essential hypertension [Unknown]
  - Fluid overload [Unknown]
  - Osteoporosis [Unknown]
  - Hyperhidrosis [Unknown]
  - Injury [Unknown]
  - Anaemia postoperative [Unknown]
  - Spinal fracture [Unknown]
  - Kyphosis [Unknown]
  - Psoriasis [Unknown]
  - Pleural effusion [Unknown]
  - Mass [Unknown]
  - Bone disorder [Not Recovered/Not Resolved]
  - Foot fracture [Unknown]
  - Fall [Unknown]
  - Diverticulum [Unknown]
  - Hip fracture [Unknown]
  - Ecchymosis [Unknown]
  - Fibromyalgia [Unknown]
  - Bursitis [Recovering/Resolving]
  - Rotator cuff syndrome [Unknown]
  - Femoral neck fracture [Unknown]
  - Vitamin D deficiency [Recovering/Resolving]
  - Bronchitis [Unknown]
  - Blood potassium decreased [Unknown]
  - Foot deformity [Unknown]
  - Intramedullary rod insertion [Recovered/Resolved]
  - Hypoxia [Recovered/Resolved]
  - Lumbar vertebral fracture [Unknown]
  - Arthralgia [Recovering/Resolving]
  - Vulval cancer [Unknown]
  - Vitamin B complex deficiency [Unknown]
  - Injection site bruising [Unknown]
  - Sacroiliitis [Unknown]
  - Diarrhoea [Unknown]

NARRATIVE: CASE EVENT DATE: 1997
